FAERS Safety Report 24567881 (Version 1)
Quarter: 2024Q4

REPORT INFORMATION
  Report Type: Report from Study
  Country: IN (occurrence: IN)
  Receive Date: 20241031
  Receipt Date: 20241031
  Transmission Date: 20250114
  Serious: Yes (Other)
  Sender: ROCHE
  Company Number: IN-002147023-NVSC2024IN209939

PATIENT
  Sex: Female
  Weight: 55 kg

DRUGS (1)
  1. RANIBIZUMAB [Suspect]
     Active Substance: RANIBIZUMAB
     Indication: Neovascular age-related macular degeneration
     Dosage: 0.05 MG, QMO
     Route: 050
     Dates: start: 20210213, end: 20240807

REACTIONS (2)
  - Retinal pigment epithelial tear [Unknown]
  - Subretinal fluid [Unknown]
